FAERS Safety Report 16127155 (Version 1)
Quarter: 2019Q2

REPORT INFORMATION
  Report Type: Spontaneous
  Country: US (occurrence: US)
  Receive Date: 20190327
  Receipt Date: 20190327
  Transmission Date: 20190711
  Serious: Yes (Hospitalization)
  Sender: FDA-Public Use
  Company Number: None

PATIENT
  Age: 32 Year
  Sex: Female
  Weight: 117 kg

DRUGS (1)
  1. AIMOVIG [Suspect]
     Active Substance: ERENUMAB-AOOE
     Indication: MIGRAINE PROPHYLAXIS
     Dosage: ?          OTHER FREQUENCY:MONTHLY;?
     Route: 058

REACTIONS (4)
  - Portal vein thrombosis [None]
  - Mesenteric vein thrombosis [None]
  - Constipation [None]
  - Injection site reaction [None]

NARRATIVE: CASE EVENT DATE: 20190326
